FAERS Safety Report 17189742 (Version 1)
Quarter: 2019Q4

REPORT INFORMATION
  Report Type: Not Available
  Country: JP (occurrence: JP)
  Receive Date: 20191223
  Receipt Date: 20191223
  Transmission Date: 20200122
  Serious: Yes (Life-Threatening, Disabling, Other)
  Sender: FDA-Public Use
  Company Number: JP-RECORDATI RARE DISEASES INC.-JP-R13005-19-00356

PATIENT

DRUGS (1)
  1. NEOPROFEN [Suspect]
     Active Substance: IBUPROFEN LYSINE
     Indication: PRODUCT USED FOR UNKNOWN INDICATION
     Route: 042
     Dates: start: 20190522

REACTIONS (7)
  - Periventricular leukomalacia [Not Recovered/Not Resolved]
  - Chronic respiratory disease [Not Recovered/Not Resolved]
  - Pulmonary hypertension [Recovered/Resolved]
  - Pneumonia [Recovered/Resolved]
  - Osteopenia [Recovered/Resolved]
  - Deafness [Not Recovered/Not Resolved]
  - Retinopathy of prematurity [Not Recovered/Not Resolved]

NARRATIVE: CASE EVENT DATE: 20190603
